FAERS Safety Report 7409323-5 (Version None)
Quarter: 2011Q2

REPORT INFORMATION
  Report Type: 
  Country: None (occurrence: None)
  Receive Date: 20110412
  Receipt Date: 20110404
  Transmission Date: 20111010
  Serious: Yes (Disabling)
  Sender: FDA-Public Use
  Company Number: CA-B.I. PHARMACEUTICALS,INC./RIDGEFIELD-2011-CN-00329CN

PATIENT
  Sex: Male

DRUGS (3)
  1. FLOMAX [Suspect]
     Indication: DYSURIA
     Route: 048
  2. FLOMAX [Suspect]
     Indication: ERECTILE DYSFUNCTION
  3. FLOMAX [Suspect]
     Indication: MUSCLE RELAXANT THERAPY

REACTIONS (8)
  - FATIGUE [None]
  - ASTHENIA [None]
  - SOMNOLENCE [None]
  - DIZZINESS EXERTIONAL [None]
  - SEDATION [None]
  - MEMORY IMPAIRMENT [None]
  - DISTURBANCE IN ATTENTION [None]
  - IMPATIENCE [None]
